FAERS Safety Report 8194408-9 (Version None)
Quarter: 2012Q1

REPORT INFORMATION
  Report Type: 
  Country: None (occurrence: None)
  Receive Date: 20120308
  Receipt Date: 20120307
  Transmission Date: 20120608
  Serious: Yes (Death)
  Sender: FDA-Public Use
  Company Number: GR-ABBOTT-12P-066-0912354-00

PATIENT
  Sex: Female
  Weight: 57.5 kg

DRUGS (5)
  1. INSULIN [Concomitant]
     Indication: DIABETES MELLITUS
     Route: 058
     Dates: start: 20010118, end: 20120305
  2. ZEMPLAR [Suspect]
     Indication: RENAL FAILURE CHRONIC
     Route: 042
     Dates: start: 20111121, end: 20120305
  3. CLOPIDOGREL [Concomitant]
     Indication: ANGIOPATHY
     Route: 048
     Dates: start: 20000101, end: 20120305
  4. AMLODIPINE [Concomitant]
     Indication: HYPERTENSION
     Route: 048
     Dates: start: 20010101, end: 20120305
  5. LEVOTHYROXINE SODIUM [Concomitant]
     Indication: HYPOTHYROIDISM
     Route: 048
     Dates: start: 19980101, end: 20120305

REACTIONS (1)
  - CARDIAC ARREST [None]
